FAERS Safety Report 24080263 (Version 1)
Quarter: 2024Q3

REPORT INFORMATION
  Report Type: Spontaneous
  Country: US (occurrence: None)
  Receive Date: 20240711
  Receipt Date: 20240711
  Transmission Date: 20241016
  Serious: Yes (Life-Threatening, Hospitalization)
  Sender: Public
  Company Number: None

PATIENT
  Age: 41 Year
  Sex: 0
  Weight: 112 kg

DRUGS (3)
  1. VANCOMYCIN HYDROCHLORIDE [Suspect]
     Active Substance: VANCOMYCIN HYDROCHLORIDE
     Indication: Peritonitis
     Dosage: OTHER FREQUENCY : ONCE;?
     Route: 033
     Dates: start: 20240708, end: 20240708
  2. CEFTAZIDIME [Concomitant]
     Active Substance: CEFTAZIDIME
     Dates: start: 20240708
  3. PD dialysate Ca 2.5, Mg 0.5, Dextrose 1.5 [Concomitant]
     Dates: start: 20240627

REACTIONS (4)
  - Feeling hot [None]
  - Pruritus [None]
  - Nausea [None]
  - Infusion related reaction [None]

NARRATIVE: CASE EVENT DATE: 20240708
